FAERS Safety Report 6670933-4 (Version None)
Quarter: 2010Q2

REPORT INFORMATION
  Report Type: 
  Country: None (occurrence: None)
  Receive Date: 20100407
  Receipt Date: 20100331
  Transmission Date: 20101027
  Serious: Yes (Hospitalization)
  Sender: FDA-Public Use
  Company Number: US-ALEXION-A201000335

PATIENT
  Sex: Male

DRUGS (8)
  1. SOLIRIS [Suspect]
     Indication: PAROXYSMAL NOCTURNAL HAEMOGLOBINURIA
     Dosage: 600 MG, QW
     Route: 042
     Dates: start: 20100125, end: 20100216
  2. SOLIRIS [Suspect]
     Dosage: 900 MG, Q2W
     Route: 042
     Dates: start: 20100223
  3. ALLOPURINOL [Concomitant]
     Dosage: 100 MG, QD
     Route: 048
  4. FLOMAX [Concomitant]
     Dosage: 0.4 MG, QD HS
     Route: 048
  5. FOLATE [Concomitant]
     Dosage: 1 MG, QD
     Route: 048
  6. CYCLOSPORINE [Concomitant]
     Dosage: 150 MG, BID
     Route: 048
  7. GLUCOTROL [Concomitant]
     Dosage: 10 MG, QD
     Route: 048
  8. PRILOSEC [Concomitant]
     Dosage: 40 MG, QD
     Route: 048

REACTIONS (1)
  - HAEMATURIA [None]
